FAERS Safety Report 9325427 (Version 1)
Quarter: 2013Q2

REPORT INFORMATION
  Report Type: Spontaneous
  Country: US (occurrence: None)
  Receive Date: 20130531
  Receipt Date: 20130531
  Transmission Date: 20140414
  Serious: Yes (Hospitalization)
  Sender: FDA-Public Use
  Company Number: None

PATIENT
  Age: 89 Year
  Sex: Male
  Weight: 82.6 kg

DRUGS (1)
  1. ASPIRIN [Suspect]
     Indication: CORONARY ARTERIAL STENT INSERTION
     Route: 048
     Dates: start: 19980101

REACTIONS (6)
  - Gastric haemorrhage [None]
  - Melaena [None]
  - Fatigue [None]
  - Dizziness [None]
  - Haemoglobin decreased [None]
  - Ulcer [None]
